FAERS Safety Report 9975452 (Version 1)
Quarter: 2014Q1

REPORT INFORMATION
  Report Type: Report from Study
  Country: US (occurrence: US)
  Receive Date: 20140306
  Receipt Date: 20140306
  Transmission Date: 20141002
  Serious: No
  Sender: FDA-Public Use
  Company Number: US-ABBVIE-13P-163-1158389-00

PATIENT
  Age: 60 Year
  Sex: Female
  Weight: 83.99 kg

DRUGS (4)
  1. HUMIRA [Suspect]
     Indication: RHEUMATOID ARTHRITIS
     Dates: start: 20130403, end: 201305
  2. PLAQUENIL [Concomitant]
     Indication: RHEUMATOID ARTHRITIS
  3. SYNTHROID [Concomitant]
     Indication: HYPOTHYROIDISM
  4. LOSARTAN [Concomitant]
     Indication: HYPERTENSION

REACTIONS (2)
  - Blister [Recovered/Resolved]
  - Rash [Recovered/Resolved]
